FAERS Safety Report 10920132 (Version 3)
Quarter: 2015Q2

REPORT INFORMATION
  Report Type: Report from Study
  Country: DE (occurrence: DE)
  Receive Date: 20150317
  Receipt Date: 20150409
  Transmission Date: 20150821
  Serious: Yes (Other)
  Sender: FDA-Public Use
  Company Number: PHHY2015DE027294

PATIENT
  Age: 25 Year
  Sex: Female
  Weight: 69 kg

DRUGS (6)
  1. L-THYROX [Concomitant]
     Active Substance: LEVOTHYROXINE SODIUM
     Indication: HYPOTHYROIDISM
     Dosage: 75 UG, QD
     Route: 048
     Dates: start: 2006
  2. PANTOPRAZOLE SODIUM. [Concomitant]
     Active Substance: PANTOPRAZOLE SODIUM
     Indication: DUODENITIS
  3. GILENYA [Suspect]
     Active Substance: FINGOLIMOD HYDROCHLORIDE
     Dosage: 0.5 MG, QD
     Route: 048
     Dates: start: 20150311
  4. PANTOPRAZOLE SODIUM. [Concomitant]
     Active Substance: PANTOPRAZOLE SODIUM
     Indication: GASTRITIS
     Dosage: 40 MG, QD
     Route: 048
     Dates: start: 2009
  5. GILENYA [Suspect]
     Active Substance: FINGOLIMOD HYDROCHLORIDE
     Indication: MULTIPLE SCLEROSIS
     Dosage: 0.5 MG, QD
     Route: 048
     Dates: start: 20150216, end: 20150306
  6. CITALOPRAM [Concomitant]
     Active Substance: CITALOPRAM HYDROBROMIDE
     Indication: DEPRESSION
     Dosage: 20 MG, QD
     Route: 048
     Dates: start: 2010

REACTIONS (10)
  - Gastric disorder [Recovering/Resolving]
  - Visual field defect [Recovered/Resolved]
  - Ocular discomfort [Not Recovered/Not Resolved]
  - Pupillary light reflex tests abnormal [Recovering/Resolving]
  - Vision blurred [Not Recovered/Not Resolved]
  - Optic neuritis [Recovered/Resolved]
  - Multiple sclerosis relapse [Recovering/Resolving]
  - Colour vision tests abnormal red-green [Recovering/Resolving]
  - Eye pain [Recovering/Resolving]
  - Macular oedema [Unknown]

NARRATIVE: CASE EVENT DATE: 20150301
